FAERS Safety Report 19097570 (Version 1)
Quarter: 2021Q2

REPORT INFORMATION
  Report Type: Spontaneous
  Country: US (occurrence: US)
  Receive Date: 20210405
  Receipt Date: 20210405
  Transmission Date: 20210717
  Serious: Yes (Disabling)
  Sender: FDA-Public Use
  Company Number: None

PATIENT
  Age: 27 Year
  Sex: Female
  Weight: 56.7 kg

DRUGS (11)
  1. B6 [Concomitant]
     Active Substance: PYRIDOXINE HYDROCHLORIDE
  2. XARELTO [Suspect]
     Active Substance: RIVAROXABAN
     Indication: DELIVERY
     Route: 008
     Dates: start: 20200424, end: 20200424
  3. VITAMIN B12 [Concomitant]
     Active Substance: CYANOCOBALAMIN
  4. OMEGA?3 ACIDS [Concomitant]
     Active Substance: OMEGA-3 FATTY ACIDS
  5. VITAMIN C [Concomitant]
     Active Substance: ASCORBIC ACID
  6. TURMERIC [Concomitant]
     Active Substance: HERBALS\TURMERIC
  7. QUERCETIN [Concomitant]
     Active Substance: QUERCETIN
  8. L?THORNINE [Concomitant]
  9. MAGNESIUM THEORNATE [Concomitant]
  10. SOLU?MEDROL [Concomitant]
     Active Substance: METHYLPREDNISOLONE SODIUM SUCCINATE
  11. STEROIDS [Concomitant]
     Active Substance: UNSPECIFIED INGREDIENT

REACTIONS (5)
  - Arachnoiditis [None]
  - Cerebrospinal fluid leakage [None]
  - Drug ineffective [None]
  - Thrombosis [None]
  - Impaired healing [None]

NARRATIVE: CASE EVENT DATE: 20200424
